APPROVED DRUG PRODUCT: ERGOMAR
Active Ingredient: ERGOTAMINE TARTRATE
Strength: 2MG
Dosage Form/Route: TABLET;SUBLINGUAL
Application: A087693 | Product #001
Applicant: PANGEA PHARMACEUTICALS LLC
Approved: Feb 24, 1983 | RLD: No | RS: Yes | Type: RX